FAERS Safety Report 12707893 (Version 1)
Quarter: 2016Q3

REPORT INFORMATION
  Report Type: Spontaneous
  Country: NL (occurrence: NL)
  Receive Date: 20160901
  Receipt Date: 20160901
  Transmission Date: 20161109
  Serious: Yes (Hospitalization)
  Sender: FDA-Public Use
  Company Number: NL-TEVA-687328ACC

PATIENT
  Age: 70 Year
  Sex: Male
  Weight: 68 kg

DRUGS (10)
  1. NITROGLYCERINE SPRAY SUBLING. 0,4MG/DO [Concomitant]
     Dosage: WHEN PAIN ON THE CHEST 1-2 X SPRAYING, AS REQUIRED 1-2 X HERHA
     Route: 048
  2. NIFEDIPINE TABLET MGA 60MG [Concomitant]
     Dosage: 60 MILLIGRAM DAILY; 1 DD 1
     Route: 048
  3. PARACETAMOL/CODEINE TABLET 500/20MG [Concomitant]
     Dosage: 2 DOSAGE FORMS DAILY; 2 TIMES DAILY ONE PIECE
     Route: 048
  4. DIAZEPAM TABLET  5MG [Concomitant]
     Dosage: 5 MILLIGRAM DAILY; 1 TIME DAILY ONE PIECE
     Route: 048
  5. PERSANTIN RETARD CAPSULE MGA 200MG [Concomitant]
     Dosage: 400 MILLIGRAM DAILY; 2 TIMES DAILY ONE PIECE
     Route: 048
  6. SIMVASTATINE TABLET FO 20MG [Concomitant]
     Dosage: 20 MILLIGRAM DAILY; 1 TIME DAILY ONE PIECE
     Route: 048
  7. ACENOCOUMAROL TABLET 1MG [Concomitant]
     Active Substance: ACENOCOUMAROL
     Dosage: DOSAGE ACCORDING TO SCHEDULE
     Route: 048
  8. SOTALOL TABLET  40MG [Concomitant]
     Active Substance: SOTALOL
     Dosage: 120 MILLIGRAM DAILY; 3 TIMES DAILY ONE PIECE
     Route: 048
  9. PANTOPRAZOL TABLET MSR 40MG [Concomitant]
     Active Substance: PANTOPRAZOLE SODIUM
     Dosage: 40 MILLIGRAM DAILY; 1 TIME DAILY ONE PIECE
     Route: 048
  10. LISINOPRIL PCH TABLET 20MG [Suspect]
     Active Substance: LISINOPRIL
     Indication: HYPERTENSION
     Dosage: 20 IU/KG DAILY; 1 TIME DAILY ONE PIECE
     Route: 048
     Dates: start: 201003, end: 20160816

REACTIONS (1)
  - Hypersensitivity [Recovered/Resolved]

NARRATIVE: CASE EVENT DATE: 201608
